FAERS Safety Report 6889007-2 (Version None)
Quarter: 2010Q3

REPORT INFORMATION
  Report Type: 
  Country: None (occurrence: None)
  Receive Date: 20100730
  Receipt Date: 20071130
  Transmission Date: 20110219
  Serious: Yes (Other)
  Sender: FDA-Public Use
  Company Number: US-PFIZER INC-2007093758

PATIENT
  Sex: Female
  Weight: 81.2 kg

DRUGS (3)
  1. LIPITOR [Suspect]
     Indication: DYSLIPIDAEMIA
     Dates: start: 20070416, end: 20070820
  2. ALISKIREN [Suspect]
     Indication: HYPERTENSION
     Dates: start: 20070101, end: 20070101
  3. ACETYLSALICYLIC ACID SRT [Concomitant]

REACTIONS (2)
  - AGEUSIA [None]
  - DYSGEUSIA [None]
